FAERS Safety Report 18955320 (Version 3)
Quarter: 2022Q1

REPORT INFORMATION
  Report Type: Report from Study
  Country: JP (occurrence: JP)
  Receive Date: 20210301
  Receipt Date: 20220129
  Transmission Date: 20220423
  Serious: Yes (Hospitalization)
  Sender: FDA-Public Use
  Company Number: JP-BAYER-2021-068399

PATIENT

DRUGS (1)
  1. EYLEA [Suspect]
     Active Substance: AFLIBERCEPT
     Indication: Neovascular age-related macular degeneration
     Dosage: UNK
     Route: 050
     Dates: start: 20201215

REACTIONS (1)
  - Angle closure glaucoma [Recovered/Resolved]

NARRATIVE: CASE EVENT DATE: 20210216
